FAERS Safety Report 6738626-2 (Version None)
Quarter: 2010Q2

REPORT INFORMATION
  Report Type: 
  Country: None (occurrence: None)
  Receive Date: 20100524
  Receipt Date: 20100517
  Transmission Date: 20101027
  Serious: Yes (Hospitalization)
  Sender: FDA-Public Use
  Company Number: IT-PFIZER INC-2010037707

PATIENT
  Age: 20 Year
  Sex: Male

DRUGS (2)
  1. XANAX [Suspect]
     Indication: SELF INJURIOUS BEHAVIOUR
     Dosage: 40 ML, TOTAL DOSE
     Route: 048
     Dates: start: 20100322
  2. LEXOTAN [Suspect]
     Indication: SELF INJURIOUS BEHAVIOUR
     Dosage: 20 ML, TOTAL DOSE
     Route: 048
     Dates: start: 20100322, end: 20100322

REACTIONS (4)
  - BRADYPHRENIA [None]
  - HYPOKINESIA [None]
  - INTENTIONAL DRUG MISUSE [None]
  - SOPOR [None]
